FAERS Safety Report 5409234-0 (Version None)
Quarter: 2007Q3

REPORT INFORMATION
  Report Type: 
  Country: None (occurrence: None)
  Receive Date: 20070809
  Receipt Date: 20070727
  Transmission Date: 20080115
  Serious: Yes (Other)
  Sender: FDA-Public Use
  Company Number: PHEH2007US09322

PATIENT
  Age: 62 Year
  Sex: Female

DRUGS (1)
  1. NEORAL [Suspect]
     Indication: PSORIASIS
     Dosage: UNK, UNK
     Route: 048
     Dates: end: 20070501

REACTIONS (13)
  - BACTERIA BLOOD IDENTIFIED [None]
  - BLOOD CARBON MONOXIDE INCREASED [None]
  - BLOOD GLUCOSE INCREASED [None]
  - BLOOD URIC ACID INCREASED [None]
  - CD4 LYMPHOCYTES INCREASED [None]
  - CD8 LYMPHOCYTES DECREASED [None]
  - DERMATITIS PSORIASIFORM [None]
  - LYMPHOCYTE PERCENTAGE INCREASED [None]
  - MONOCYTE PERCENTAGE DECREASED [None]
  - NEUTROPHIL PERCENTAGE DECREASED [None]
  - PRURITUS [None]
  - WHITE BLOOD CELL COUNT INCREASED [None]
  - YELLOW SKIN [None]
